FAERS Safety Report 6740003-5 (Version None)
Quarter: 2010Q2

REPORT INFORMATION
  Report Type: 
  Country: None (occurrence: None)
  Receive Date: 20100520
  Receipt Date: 20100318
  Transmission Date: 20101027
  Serious: Yes (Other)
  Sender: FDA-Public Use
  Company Number: 2010036116

PATIENT
  Age: 57 Year
  Sex: Female
  Weight: 47 kg

DRUGS (12)
  1. NICOTROL [Suspect]
     Indication: SMOKING CESSATION THERAPY
     Dosage: 10 MG/ML SPRAY, NASAL
     Route: 045
     Dates: start: 20100318, end: 20100318
  2. TOPAMAX [Concomitant]
  3. LYRICA [Concomitant]
  4. FENTANYL-100 [Concomitant]
  5. ADVAIR DISKUS 100/50 [Concomitant]
  6. SPIRIVA [Concomitant]
  7. CITALOPRAM HYDROBROMIDE [Concomitant]
  8. XANAX [Concomitant]
  9. VICODIN [Concomitant]
  10. NITROGLYCERIN (GLYCERTYL TRINITRATE) [Concomitant]
  11. FIORICET [Concomitant]
  12. IDOXURIDINE (IDOXURIDINE) [Concomitant]

REACTIONS (6)
  - CONFUSIONAL STATE [None]
  - DIZZINESS [None]
  - FEELING ABNORMAL [None]
  - GAIT DISTURBANCE [None]
  - HEADACHE [None]
  - NAUSEA [None]
